FAERS Safety Report 21692267 (Version 1)
Quarter: 2022Q4

REPORT INFORMATION
  Report Type: Spontaneous
  Country: US (occurrence: US)
  Receive Date: 20221207
  Receipt Date: 20221207
  Transmission Date: 20230113
  Serious: Yes (Hospitalization, Other)
  Sender: FDA-Public Use
  Company Number: US-MLMSERVICE-20221118-3930591-1

PATIENT
  Age: 76 Year
  Sex: Male

DRUGS (12)
  1. ATORVASTATIN [Suspect]
     Active Substance: ATORVASTATIN
     Indication: Product used for unknown indication
  2. TACROLIMUS [Interacting]
     Active Substance: TACROLIMUS
     Indication: Immunosuppressant drug therapy
     Dates: start: 2014
  3. RITONAVIR [Interacting]
     Active Substance: RITONAVIR
     Indication: Breakthrough COVID-19
     Dosage: STRENGTH: 100 MG
  4. INSULIN NOS [Concomitant]
     Active Substance: INSULIN NOS
  5. NIRMATRELVIR [Concomitant]
     Active Substance: NIRMATRELVIR
     Indication: Breakthrough COVID-19
  6. OMEPRAZOLE [Concomitant]
     Active Substance: OMEPRAZOLE
  7. MYCOPHENOLATE MOFETIL [Concomitant]
     Active Substance: MYCOPHENOLATE MOFETIL
     Indication: Immunosuppressant drug therapy
     Dates: start: 2014
  8. SEMAGLUTIDE [Concomitant]
     Active Substance: SEMAGLUTIDE
  9. ASPIRIN [Concomitant]
     Active Substance: ASPIRIN
  10. ICOSAPENT [Concomitant]
     Active Substance: ICOSAPENT
  11. LISINOPRIL [Concomitant]
     Active Substance: LISINOPRIL
  12. FAMOTIDINE [Concomitant]
     Active Substance: FAMOTIDINE

REACTIONS (3)
  - Immunosuppressant drug level increased [Recovered/Resolved]
  - Drug interaction [Unknown]
  - Acute kidney injury [Recovered/Resolved]
